FAERS Safety Report 6121385-4 (Version None)
Quarter: 2009Q1

REPORT INFORMATION
  Report Type: 
  Country: None (occurrence: None)
  Receive Date: 20090313
  Receipt Date: 20090313
  Transmission Date: 20090719
  Serious: Yes (Hospitalization)
  Sender: FDA-Public Use
  Company Number: None

PATIENT
  Age: 23 Year
  Sex: Female
  Weight: 54.4316 kg

DRUGS (4)
  1. ADVAIR DISKUS 250/50 [Suspect]
     Indication: BRONCHITIS
     Dosage: 2 2 TIMES A DAY INHAL
     Route: 055
     Dates: start: 20070710, end: 20080501
  2. ADVAIR DISKUS 250/50 [Suspect]
     Indication: INFLUENZA
     Dosage: 2 2 TIMES A DAY INHAL
     Route: 055
     Dates: start: 20070710, end: 20080501
  3. ADVAIR DISKUS 250/50 [Suspect]
     Indication: BRONCHITIS
     Dosage: 2 2 TIMES A DAY INHAL
     Route: 055
     Dates: start: 20081001, end: 20081003
  4. ADVAIR DISKUS 250/50 [Suspect]
     Indication: INFLUENZA
     Dosage: 2 2 TIMES A DAY INHAL
     Route: 055
     Dates: start: 20081001, end: 20081003

REACTIONS (8)
  - BRONCHITIS [None]
  - CHEST PAIN [None]
  - CONVULSION [None]
  - DYSPNOEA [None]
  - HYPERTENSION [None]
  - MUSCULAR WEAKNESS [None]
  - PANIC ATTACK [None]
  - TREMOR [None]
